FAERS Safety Report 24825538 (Version 1)
Quarter: 2025Q1

REPORT INFORMATION
  Report Type: Spontaneous
  Country: FR (occurrence: FR)
  Receive Date: 20250109
  Receipt Date: 20250109
  Transmission Date: 20250409
  Serious: Yes (Other)
  Sender: ALEXION PHARMACEUTICALS
  Company Number: FR-SA-2025SA003249

PATIENT
  Age: 5 Month

DRUGS (4)
  1. BEYFORTUS [Suspect]
     Active Substance: NIRSEVIMAB-ALIP
     Route: 065
  2. BEYFORTUS [Suspect]
     Active Substance: NIRSEVIMAB-ALIP
     Route: 065
  3. BEYFORTUS [Suspect]
     Active Substance: NIRSEVIMAB-ALIP
     Route: 065
  4. BEYFORTUS [Suspect]
     Active Substance: NIRSEVIMAB-ALIP
     Route: 065

REACTIONS (1)
  - Bronchiolitis [Unknown]
